FAERS Safety Report 7319112-8 (Version None)
Quarter: 2011Q1

REPORT INFORMATION
  Report Type: 
  Country: None (occurrence: None)
  Receive Date: 20110228
  Receipt Date: 20110216
  Transmission Date: 20110831
  Serious: Yes (Hospitalization)
  Sender: FDA-Public Use
  Company Number: FR-NOVOPROD-320809

PATIENT
  Age: 83 Year
  Sex: Male

DRUGS (10)
  1. EUPANTOL [Concomitant]
     Dosage: (1/DAY)
  2. BURINEX [Concomitant]
     Dosage: (0.5/DAY)
  3. TEMERIT [Concomitant]
     Dosage: (1/DAY)
  4. PREVISCAN                          /00261401/ [Concomitant]
     Dosage: (0.25 1X/2 DAYS + 0.5 1X/2 DAYS)
  5. NOVONORM [Suspect]
     Dosage: 1 MG(MORNING, NOON AND EVENING), TID
  6. NOVONORM [Suspect]
     Indication: PRODUCT USED FOR UNKNOWN INDICATION
     Dosage: 2 MG, TID
     Route: 065
  7. LASIX [Concomitant]
     Dosage: (0.25/DAY)
  8. KARDEGIC [Concomitant]
     Dosage: 1/DAY
  9. CORDARONE [Concomitant]
     Dosage: (1 IN MORNING)
  10. SIMVASTATIN [Concomitant]
     Dosage: 1/DAY)

REACTIONS (2)
  - OVERDOSE [None]
  - HYPOGLYCAEMIC COMA [None]
